FAERS Safety Report 9096990 (Version 2)
Quarter: 2013Q1

REPORT INFORMATION
  Report Type: Spontaneous
  Country: US (occurrence: None)
  Receive Date: 20130124
  Receipt Date: 20130124
  Transmission Date: 20140127
  Serious: Yes (Hospitalization)
  Sender: FDA-Public Use
  Company Number: OTH-PAT-2013001

PATIENT
  Age: 50 Year
  Sex: Female

DRUGS (1)
  1. CYSTADANE [Suspect]
     Indication: METABOLIC DISORDER
     Dates: start: 20070713

REACTIONS (4)
  - Hallucination [None]
  - Psychotic behaviour [None]
  - Aggression [None]
  - Condition aggravated [None]
